FAERS Safety Report 9344556 (Version 2)
Quarter: 2013Q3

REPORT INFORMATION
  Report Type: Spontaneous
  Country: TW (occurrence: TW)
  Receive Date: 20130612
  Receipt Date: 20130719
  Transmission Date: 20140515
  Serious: Yes (Hospitalization)
  Sender: FDA-Public Use
  Company Number: TW-ABBOTT-13P-153-1101470-00

PATIENT
  Age: 37 Year
  Sex: Female
  Weight: 48 kg

DRUGS (5)
  1. HUMIRA [Suspect]
     Indication: RHEUMATOID ARTHRITIS
     Route: 058
     Dates: start: 20120306, end: 20130522
  2. HYDROXYCHLOROQUINE SULFATE [Concomitant]
     Indication: RHEUMATOID ARTHRITIS
     Route: 048
     Dates: start: 20130514
  3. PREDNISONE [Concomitant]
     Indication: RHEUMATOID ARTHRITIS
     Route: 048
     Dates: start: 20130514
  4. ETORICOXIB [Concomitant]
     Indication: RHEUMATOID ARTHRITIS
     Dosage: 1.5#, 1 IN 1 DAY
     Route: 048
     Dates: start: 20130514
  5. TENOFOVIR [Concomitant]
     Indication: CHRONIC HEPATITIS B
     Route: 048
     Dates: start: 20130514

REACTIONS (5)
  - Arthropod bite [Recovering/Resolving]
  - Cellulitis [Recovering/Resolving]
  - Wound complication [Recovering/Resolving]
  - Wound complication [Recovering/Resolving]
  - Wound complication [Recovering/Resolving]
